FAERS Safety Report 25231329 (Version 1)
Quarter: 2025Q2

REPORT INFORMATION
  Report Type: Spontaneous
  Country: US (occurrence: US)
  Receive Date: 20250423
  Receipt Date: 20250423
  Transmission Date: 20250716
  Serious: Yes (Other)
  Sender: CALLIDITAS THERAPEUTICS AB
  Company Number: US-Calliditas-2025CAL01046

PATIENT
  Age: 65 Year
  Sex: Male

DRUGS (1)
  1. TARPEYO [Suspect]
     Active Substance: BUDESONIDE
     Indication: Product used for unknown indication
     Route: 048
     Dates: start: 202411

REACTIONS (5)
  - Renal impairment [Unknown]
  - Blood pressure inadequately controlled [Unknown]
  - Face oedema [Unknown]
  - Contusion [Unknown]
  - Ecchymosis [Unknown]
